FAERS Safety Report 4384093-6 (Version None)
Quarter: 2004Q2

REPORT INFORMATION
  Report Type: 
  Country: None (occurrence: None)
  Receive Date: 20040622
  Receipt Date: 20040622
  Transmission Date: 20050107
  Serious: Yes (Hospitalization, Disabling)
  Sender: FDA-Public Use
  Company Number: None

PATIENT
  Age: 80 Year
  Sex: Female
  Weight: 58.9676 kg

DRUGS (2)
  1. DILANTIN [Suspect]
     Indication: SIMPLE PARTIAL SEIZURES
     Dosage: 300 MG PO /BEDTI
     Route: 048
     Dates: start: 20040515, end: 20040607
  2. DILATIN [Concomitant]

REACTIONS (9)
  - AGGRESSION [None]
  - BLOOD GLUCOSE FLUCTUATION [None]
  - BLOOD POTASSIUM DECREASED [None]
  - DEPRESSED LEVEL OF CONSCIOUSNESS [None]
  - DIARRHOEA [None]
  - IRRITABILITY [None]
  - SIMPLE PARTIAL SEIZURES [None]
  - STEVENS-JOHNSON SYNDROME [None]
  - WHITE BLOOD CELL COUNT INCREASED [None]
